FAERS Safety Report 9703384 (Version 3)
Quarter: 2014Q1

REPORT INFORMATION
  Report Type: Report from Study
  Country: JP (occurrence: JP)
  Receive Date: 20131122
  Receipt Date: 20140115
  Transmission Date: 20141002
  Serious: Yes (Other)
  Sender: FDA-Public Use
  Company Number: PHHY2013JP133412

PATIENT
  Age: 69 Year
  Sex: Female

DRUGS (8)
  1. EXELON [Suspect]
     Indication: DEMENTIA ALZHEIMER^S TYPE
     Dosage: 4.5 MG,
     Route: 062
     Dates: start: 20121009, end: 20121105
  2. EXELON [Suspect]
     Indication: BASAL GANGLION DEGENERATION
     Dosage: 9 MG, UNK
     Route: 062
     Dates: start: 20121106, end: 20121120
  3. EXELON [Suspect]
     Indication: OFF LABEL USE
  4. ARICEPT [Concomitant]
     Indication: DEMENTIA ALZHEIMER^S TYPE
     Dosage: 3 MG, UNK
     Route: 048
     Dates: start: 20120207
  5. ARICEPT [Concomitant]
     Dosage: 5 MG, UNK
     Route: 048
     Dates: end: 20121008
  6. SEROQUEL [Concomitant]
     Dosage: 25 MG, UNK
     Route: 048
     Dates: start: 20121009, end: 20121029
  7. LANSOPRAZOLE [Concomitant]
     Indication: GASTROOESOPHAGEAL REFLUX DISEASE
     Dosage: 15 MG, UNK
     Route: 048
     Dates: start: 20121009
  8. GASMOTIN [Concomitant]
     Indication: GASTRITIS
     Dosage: 15 MG, UNK
     Route: 048
     Dates: start: 20121009

REACTIONS (2)
  - Parkinsonism [Not Recovered/Not Resolved]
  - Tremor [Unknown]
